FAERS Safety Report 21831712 (Version 2)
Quarter: 2023Q1

REPORT INFORMATION
  Report Type: Spontaneous
  Country: FR (occurrence: FR)
  Receive Date: 20230106
  Receipt Date: 20230112
  Transmission Date: 20230418
  Serious: Yes (Other)
  Sender: FDA-Public Use
  Company Number: FR-GILEAD-2023-0611734

PATIENT
  Sex: Female
  Weight: 2.41 kg

DRUGS (7)
  1. CAYSTON [Suspect]
     Active Substance: AZTREONAM
     Indication: Cystic fibrosis
     Dosage: 6 G, QD
     Route: 064
  2. IVACAFTOR\TEZACAFTOR [Concomitant]
     Active Substance: IVACAFTOR\TEZACAFTOR
  3. CEFTAZIDIME [Concomitant]
     Active Substance: CEFTAZIDIME
     Dosage: 5 G, BID
  4. PANCREATIN [Concomitant]
     Active Substance: PANCRELIPASE
     Dosage: 160000 UI, QD
  5. TERBUTALINE [Concomitant]
     Active Substance: TERBUTALINE
     Dosage: 2 INHALATIONS
     Route: 055
  6. OXYGEN [Concomitant]
     Active Substance: OXYGEN
  7. INSULIN HUMAN [Concomitant]
     Active Substance: INSULIN HUMAN

REACTIONS (2)
  - Respiratory distress [Unknown]
  - Foetal exposure during pregnancy [Recovered/Resolved]
